FAERS Safety Report 6088134-X (Version None)
Quarter: 2009Q1

REPORT INFORMATION
  Report Type: 
  Country: None (occurrence: None)
  Receive Date: 20090224
  Receipt Date: 20090216
  Transmission Date: 20090719
  Serious: Yes (Life-Threatening)
  Sender: FDA-Public Use
  Company Number: JP-SP-2009-00659

PATIENT
  Age: 72 Year
  Sex: Male

DRUGS (6)
  1. IMMUCYST [Suspect]
     Indication: BLADDER CANCER
     Dosage: NOT REPORTED
     Route: 043
  2. DOXORUBICIN HYDROCHLORIDE [Suspect]
     Dosage: NOT REPORTED
     Route: 065
  3. VINBLASTINE SULFATE [Concomitant]
  4. CISPLATIN [Concomitant]
  5. METHOTREXATE [Concomitant]
  6. PIRARUBICIN HYDROCHLORIDE [Concomitant]

REACTIONS (8)
  - ANAPHYLACTIC SHOCK [None]
  - CARDIAC ARREST [None]
  - DYSPNOEA [None]
  - GENERALISED ERYTHEMA [None]
  - HYPERHIDROSIS [None]
  - INFUSION SITE ERYTHEMA [None]
  - NAUSEA [None]
  - VOMITING [None]
